FAERS Safety Report 4289714-4 (Version None)
Quarter: 2004Q1

REPORT INFORMATION
  Report Type: 
  Country: None (occurrence: None)
  Receive Date: 20040126
  Receipt Date: 20021223
  Transmission Date: 20041129
  Serious: No
  Sender: FDA-Public Use
  Company Number: 02P-163-0203804-00

PATIENT
  Age: 54 Year
  Sex: Male

DRUGS (8)
  1. TERAZOSIN HYDROCHLORIDE [Suspect]
     Indication: DRUG INTERACTION
     Dosage: SEE IMAGE
     Dates: start: 20021001, end: 20021003
  2. TERAZOSIN HYDROCHLORIDE [Suspect]
     Indication: DRUG INTERACTION
     Dosage: SEE IMAGE
     Dates: start: 20021004, end: 20021006
  3. TERAZOSIN HYDROCHLORIDE [Suspect]
     Indication: DRUG INTERACTION
     Dosage: SEE IMAGE
     Dates: start: 20021007, end: 20021010
  4. TERAZOSIN HYDROCHLORIDE [Suspect]
     Indication: DRUG INTERACTION
     Dosage: SEE IMAGE
     Dates: start: 20021011, end: 20021021
  5. TERAZOSIN HYDROCHLORIDE [Suspect]
     Indication: DRUG INTERACTION
     Dosage: SEE IMAGE
     Dates: start: 20021022, end: 20021022
  6. STUDY DRUG (VARDENAFIL 10 MG OR VARDENAFIL 20 MG OR PLACEBO [Suspect]
     Indication: DRUG INTERACTION
     Dosage: SEE IMAGE
     Route: 048
     Dates: start: 20021015, end: 20021015
  7. STUDY DRUG (VARDENAFIL 10 MG OR VARDENAFIL 20 MG OR PLACEBO [Suspect]
     Indication: DRUG INTERACTION
     Dosage: SEE IMAGE
     Route: 048
     Dates: start: 20021017, end: 20021017
  8. STUDY DRUG (VARDENAFIL 10 MG OR VARDENAFIL 20 MG OR PLACEBO [Suspect]
     Indication: DRUG INTERACTION
     Dosage: SEE IMAGE
     Route: 048
     Dates: start: 20021022, end: 20021022

REACTIONS (2)
  - DYSPEPSIA [None]
  - HYPOTENSION [None]
